FAERS Safety Report 16571660 (Version 1)
Quarter: 2019Q3

REPORT INFORMATION
  Report Type: Spontaneous
  Country: US (occurrence: US)
  Receive Date: 20190715
  Receipt Date: 20190715
  Transmission Date: 20191004
  Serious: No
  Sender: FDA-Public Use
  Company Number: US-BAYER-2019-131275

PATIENT
  Age: 49 Year
  Sex: Female
  Weight: 59 kg

DRUGS (2)
  1. BAYER LOW DOSE [Suspect]
     Active Substance: ASPIRIN
     Indication: INTRACRANIAL ANEURYSM
     Dosage: 1 DF
     Route: 048
     Dates: start: 2013
  2. CLARITIN [Suspect]
     Active Substance: LORATADINE
     Indication: SINUS HEADACHE
     Dosage: 1 DF, QD
     Route: 048
     Dates: start: 2019

REACTIONS (3)
  - Product use in unapproved indication [Unknown]
  - Product use in unapproved indication [Unknown]
  - Weight increased [Unknown]

NARRATIVE: CASE EVENT DATE: 2019
